FAERS Safety Report 4439477-4 (Version None)
Quarter: 2004Q3

REPORT INFORMATION
  Report Type: 
  Country: None (occurrence: None)
  Receive Date: 20040901
  Receipt Date: 20040901
  Transmission Date: 20050211
  Serious: Yes (Hospitalization)
  Sender: FDA-Public Use
  Company Number: None

PATIENT
  Sex: Female
  Weight: 84.8226 kg

DRUGS (3)
  1. VASERETIC [Suspect]
     Indication: HYPERTENSION
     Dosage: PO [ PRIOR TO ADMSSION]
     Route: 048
  2. GLUCOTROL XL [Concomitant]
  3. AVANDAMET [Concomitant]

REACTIONS (2)
  - DYSPHAGIA [None]
  - SWOLLEN TONGUE [None]
